FAERS Safety Report 4962368-7 (Version None)
Quarter: 2006Q2

REPORT INFORMATION
  Report Type: 
  Country: None (occurrence: None)
  Receive Date: 20060403
  Receipt Date: 20060403
  Transmission Date: 20061013
  Serious: No
  Sender: FDA-Public Use
  Company Number: None

PATIENT
  Age: 52 Year
  Sex: Female
  Weight: 90.7194 kg

DRUGS (4)
  1. TYGACIL [Suspect]
     Indication: MYCOBACTERIAL INFECTION
     Dosage: 100 MG Q12H IV DRIP
     Route: 041
  2. PRIMAXIN [Interacting]
  3. BIAXIN [Concomitant]
  4. AMIKACIN [Concomitant]

REACTIONS (3)
  - DRUG THERAPY CHANGED [None]
  - INFUSION RELATED REACTION [None]
  - NAUSEA [None]
